FAERS Safety Report 7206734-8 (Version None)
Quarter: 2011Q1

REPORT INFORMATION
  Report Type: 
  Country: None (occurrence: None)
  Receive Date: 20110103
  Receipt Date: 20101229
  Transmission Date: 20110831
  Serious: Yes (Hospitalization)
  Sender: FDA-Public Use
  Company Number: FR-PFIZER INC-FR-WYE-G06782010

PATIENT
  Age: 58 Year
  Sex: Female

DRUGS (14)
  1. BACTRIM [Suspect]
     Dosage: UNK
     Route: 065
     Dates: start: 20100731, end: 20100812
  2. ZOVIRAX [Suspect]
     Dosage: UNK
     Route: 065
     Dates: start: 20100719, end: 20100816
  3. FLAGYL [Suspect]
     Dosage: UNK
     Route: 065
     Dates: start: 20100719, end: 20100803
  4. TAZOCILLINE [Suspect]
     Dosage: UNK
     Route: 042
     Dates: start: 20100729, end: 20100807
  5. CLAFORAN [Suspect]
     Dosage: UNK
     Route: 042
     Dates: start: 20100723, end: 20100728
  6. CANCIDAS [Suspect]
     Dosage: UNK
     Route: 042
     Dates: start: 20100724, end: 20100803
  7. PROZAC [Concomitant]
     Route: 048
  8. KARDEGIC [Concomitant]
     Route: 065
  9. XANAX [Concomitant]
     Route: 048
  10. VANCOMYCIN [Suspect]
     Dosage: UNK
     Route: 042
     Dates: start: 20100723, end: 20100808
  11. TAHOR [Concomitant]
     Route: 048
  12. IMIPENEM AND CILASTATIN [Suspect]
     Dosage: UNK
     Route: 042
     Dates: start: 20100810, end: 20100813
  13. NEXIUM [Concomitant]
     Route: 065
  14. CIFLOX [Suspect]
     Dosage: UNK
     Route: 065
     Dates: start: 20100729, end: 20100808

REACTIONS (1)
  - DRUG RASH WITH EOSINOPHILIA AND SYSTEMIC SYMPTOMS [None]
